FAERS Safety Report 10911751 (Version 1)
Quarter: 2015Q1

REPORT INFORMATION
  Report Type: Spontaneous
  Country: US (occurrence: None)
  Receive Date: 20150309
  Receipt Date: 20150309
  Transmission Date: 20150721
  Serious: Yes (Other)
  Sender: FDA-Public Use
  Company Number: 2015AKN00116

PATIENT
  Age: 19 Year
  Sex: Male

DRUGS (1)
  1. MYORISAN [Suspect]
     Active Substance: ISOTRETINOIN
     Indication: ACNE CYSTIC
     Dosage: 40 MG, 1X/DAY, ORAL
     Route: 048
     Dates: start: 20141218, end: 20150126

REACTIONS (3)
  - Depression [None]
  - Panic attack [None]
  - Anxiety [None]

NARRATIVE: CASE EVENT DATE: 201501
